FAERS Safety Report 20177228 (Version 4)
Quarter: 2023Q2

REPORT INFORMATION
  Report Type: Report from Study
  Country: US (occurrence: US)
  Receive Date: 20211213
  Receipt Date: 20230518
  Transmission Date: 20230721
  Serious: Yes (Other)
  Sender: FDA-Public Use
  Company Number: US-TAKEDA-US202031797

PATIENT
  Sex: Female

DRUGS (1)
  1. HUMAN IMMUNOGLOBULIN G [Suspect]
     Active Substance: HUMAN IMMUNOGLOBULIN G
     Indication: Immunodeficiency common variable
     Dosage: UNK
     Route: 065

REACTIONS (9)
  - Pericarditis [Unknown]
  - Shoulder fracture [Recovering/Resolving]
  - Fall [Recovering/Resolving]
  - Gastrointestinal disorder [Recovered/Resolved]
  - Respiratory tract infection [Not Recovered/Not Resolved]
  - Upper respiratory tract infection [Unknown]
  - Oropharyngeal pain [Unknown]
  - Malaise [Unknown]
  - Pyrexia [Unknown]
